FAERS Safety Report 4992349-9 (Version None)
Quarter: 2006Q2

REPORT INFORMATION
  Report Type: 
  Country: None (occurrence: None)
  Receive Date: 20060502
  Receipt Date: 20060428
  Transmission Date: 20061013
  Serious: Yes (Death)
  Sender: FDA-Public Use
  Company Number: 007332

PATIENT
  Age: 17 Year
  Sex: Male

DRUGS (1)
  1. CLARAVIS [Suspect]
     Indication: ACNE
     Dosage: 1 CAPS., QD, ORAL
     Route: 048
     Dates: start: 20060228, end: 20060427

REACTIONS (1)
  - ACCIDENTAL DEATH [None]
